FAERS Safety Report 7571444 (Version 2)
Quarter: 2013Q1

REPORT INFORMATION
  Report Type: Spontaneous
  Country: US (occurrence: US)
  Receive Date: 20100902
  Receipt Date: 20130318
  Transmission Date: 20140127
  Serious: Yes (Hospitalization, Other)
  Sender: FDA-Public Use
  Company Number: US-US-EMD SERONO, INC.-7004154

PATIENT
  Age: 46 None
  Sex: Male
  Weight: 100 kg

DRUGS (5)
  1. REBIF [Suspect]
     Indication: MULTIPLE SCLEROSIS
     Route: 058
     Dates: start: 200910, end: 20130226
  2. ZOCOR [Concomitant]
     Indication: BLOOD CHOLESTEROL INCREASED
  3. LISINOPRIL [Concomitant]
     Indication: HYPERTENSION
  4. ASPIRIN [Concomitant]
     Indication: CEREBROVASCULAR ACCIDENT
     Dates: start: 2002
  5. ANDRODERM [Concomitant]
     Indication: TESTIS CANCER
     Route: 062
     Dates: start: 1992

REACTIONS (11)
  - Suicidal ideation [Recovered/Resolved]
  - Urinary tract infection [Unknown]
  - Anxiety [Unknown]
  - Multiple sclerosis relapse [Recovered/Resolved]
  - Depression [Recovered/Resolved]
  - Thyroid disorder [Unknown]
  - Muscular weakness [Not Recovered/Not Resolved]
  - Musculoskeletal stiffness [Not Recovered/Not Resolved]
  - Back pain [Unknown]
  - Hypothyroidism [Unknown]
  - Hyperthyroidism [Unknown]
